FAERS Safety Report 24057765 (Version 1)
Quarter: 2024Q3

REPORT INFORMATION
  Report Type: Spontaneous
  Country: ZA (occurrence: ZA)
  Receive Date: 20240707
  Receipt Date: 20240707
  Transmission Date: 20241016
  Serious: Yes (Other)
  Sender: SANOFI AVENTIS
  Company Number: ZA-SA-SAC20240701000936

PATIENT
  Sex: Female

DRUGS (3)
  1. AUBAGIO [Suspect]
     Active Substance: TERIFLUNOMIDE
     Dosage: UNK
     Route: 065
  2. SOLU-MEDROL [Concomitant]
     Active Substance: METHYLPREDNISOLONE SODIUM SUCCINATE
     Dosage: UNK
  3. MYELENEA [Concomitant]
     Dosage: UNK

REACTIONS (9)
  - Hemihypoaesthesia [Unknown]
  - Muscular weakness [Unknown]
  - Lhermitte^s sign [Unknown]
  - Pain [Unknown]
  - Gait disturbance [Unknown]
  - Pollakiuria [Unknown]
  - Central nervous system lesion [Unknown]
  - Condition aggravated [Unknown]
  - Paraesthesia [Unknown]

NARRATIVE: CASE EVENT DATE: 20221101
